FAERS Safety Report 4423244-1 (Version None)
Quarter: 2004Q3

REPORT INFORMATION
  Report Type: 
  Country: None (occurrence: None)
  Receive Date: 20040811
  Receipt Date: 20040804
  Transmission Date: 20050211
  Serious: Yes (Other)
  Sender: FDA-Public Use
  Company Number: DE-BRISTOL-MYERS SQUIBB COMPANY-12661112

PATIENT
  Age: 75 Year
  Sex: Male
  Weight: 62 kg

DRUGS (2)
  1. PACLITAXEL [Suspect]
     Indication: NON-SMALL CELL LUNG CANCER
     Dosage: AUC 6
     Route: 042
     Dates: start: 20040408, end: 20040408
  2. CARBOPLATIN [Suspect]
     Indication: NON-SMALL CELL LUNG CANCER
     Dosage: 100 MG/M2 DAYS 1-8
     Route: 042
     Dates: start: 20040408, end: 20040415

REACTIONS (2)
  - CONGESTIVE CARDIOMYOPATHY [None]
  - LOW CARDIAC OUTPUT SYNDROME [None]
